FAERS Safety Report 6831899-7 (Version None)
Quarter: 2010Q3

REPORT INFORMATION
  Report Type: 
  Country: None (occurrence: None)
  Receive Date: 20100712
  Receipt Date: 20100701
  Transmission Date: 20110219
  Serious: Yes (Hospitalization)
  Sender: FDA-Public Use
  Company Number: DE-WYE-H16006510

PATIENT
  Sex: Female

DRUGS (3)
  1. PANTOPRAZOLE [Suspect]
  2. CLARITHROMYCIN [Suspect]
  3. AMOXICILLIN [Suspect]

REACTIONS (2)
  - CONDITION AGGRAVATED [None]
  - PANCREATITIS [None]
